FAERS Safety Report 22521057 (Version 1)
Quarter: 2023Q2

REPORT INFORMATION
  Report Type: Spontaneous
  Country: US (occurrence: US)
  Receive Date: 20230605
  Receipt Date: 20230605
  Transmission Date: 20230722
  Serious: Yes (Other)
  Sender: FDA-Public Use
  Company Number: US-TEVA-2023-US-2893175

PATIENT
  Age: 73 Year
  Sex: Female

DRUGS (2)
  1. AJOVY [Suspect]
     Active Substance: FREMANEZUMAB-VFRM
     Indication: Migraine
     Dosage: DOSE : 225 MG/1.5 ML
     Route: 065
     Dates: start: 2022
  2. AJOVY [Suspect]
     Active Substance: FREMANEZUMAB-VFRM

REACTIONS (4)
  - Syncope [Unknown]
  - Injection site erythema [Recovered/Resolved]
  - Injection site mass [Unknown]
  - Injection site induration [Recovering/Resolving]

NARRATIVE: CASE EVENT DATE: 20230101
